FAERS Safety Report 23565874 (Version 2)
Quarter: 2024Q1

REPORT INFORMATION
  Report Type: Spontaneous
  Country: AR (occurrence: AR)
  Receive Date: 20240226
  Receipt Date: 20240229
  Transmission Date: 20240409
  Serious: Yes (Hospitalization)
  Sender: FDA-Public Use
  Company Number: AR-MYLANLABS-2024M1018064

PATIENT
  Sex: Female

DRUGS (5)
  1. CLOZAPINE [Suspect]
     Active Substance: CLOZAPINE
     Indication: Product used for unknown indication
     Dosage: 500 MILLIGRAM, QD (PER DAY)
     Route: 065
  2. BIPERIDEN [Concomitant]
     Active Substance: BIPERIDEN
     Dosage: 2 MILLIGRAM, QD (PER DAY)
     Route: 065
  3. TOPIRAMATE [Concomitant]
     Active Substance: TOPIRAMATE
     Dosage: 50 MILLIGRAM, QD (PER DAY)
     Route: 065
  4. CARIPRAZINE [Concomitant]
     Active Substance: CARIPRAZINE
     Dosage: 3 MILLIGRAM, QD (PER DAY)
     Route: 065
  5. LORAZEPAM [Concomitant]
     Active Substance: LORAZEPAM
     Dosage: 2.5 MILLIGRAM, QD (PER DAY)
     Route: 065

REACTIONS (1)
  - Psychiatric decompensation [Recovering/Resolving]
